FAERS Safety Report 10031670 (Version 1)
Quarter: 2014Q1

REPORT INFORMATION
  Report Type: Spontaneous
  Country: US (occurrence: US)
  Receive Date: 20140324
  Receipt Date: 20140324
  Transmission Date: 20141002
  Serious: No
  Sender: FDA-Public Use
  Company Number: US-PFIZER INC-2014083615

PATIENT
  Age: 42 Year
  Sex: Female
  Weight: 91.61 kg

DRUGS (2)
  1. PRISTIQ [Suspect]
     Indication: DEPRESSION
     Dosage: 100 MG, DAILY
  2. PRISTIQ [Suspect]
     Dosage: 200 MG, DAILY
     Dates: start: 2013, end: 201403

REACTIONS (1)
  - Drug withdrawal syndrome [Recovered/Resolved]
